FAERS Safety Report 11123683 (Version 2)
Quarter: 2015Q2

REPORT INFORMATION
  Report Type: Spontaneous
  Country: BR (occurrence: BR)
  Receive Date: 20150519
  Receipt Date: 20150531
  Transmission Date: 20150821
  Serious: Yes (Other)
  Sender: FDA-Public Use
  Company Number: PHHY2015BR060561

PATIENT
  Sex: Male

DRUGS (3)
  1. RISPERIDONE. [Concomitant]
     Active Substance: RISPERIDONE
     Indication: DEMENTIA ALZHEIMER^S TYPE
     Dosage: 3 DF (TABLETS OF 1 MG), QD
     Route: 048
  2. QUETIAPINE [Concomitant]
     Active Substance: QUETIAPINE
     Indication: DEMENTIA ALZHEIMER^S TYPE
     Dosage: 3 DF (3 TABLETS OF 100 MG), QD
     Route: 048
  3. EXELON PATCH [Suspect]
     Active Substance: RIVASTIGMINE
     Indication: DEMENTIA ALZHEIMER^S TYPE
     Dosage: 9 MG (PATCH OF 5 CM), QD
     Route: 062
     Dates: end: 20150513

REACTIONS (5)
  - Application site scab [Unknown]
  - Application site pruritus [Recovering/Resolving]
  - Application site erosion [Unknown]
  - Application site pain [Recovering/Resolving]
  - Application site hypersensitivity [Recovering/Resolving]
